FAERS Safety Report 8843449 (Version 2)
Quarter: 2015Q3

REPORT INFORMATION
  Report Type: Report from Study
  Country: US (occurrence: US)
  Receive Date: 20121016
  Receipt Date: 20150811
  Transmission Date: 20151125
  Serious: Yes (Other)
  Sender: FDA-Public Use
  Company Number: US-ROCHE-1138874

PATIENT
  Sex: Male

DRUGS (4)
  1. PROGRAF [Concomitant]
     Active Substance: TACROLIMUS\TACROLIMUS ANHYDROUS
  2. NUTROPIN AQ [Suspect]
     Active Substance: SOMATROPIN
     Indication: RENAL DISORDER
     Route: 058
     Dates: start: 1989
  3. IMURAN [Concomitant]
     Active Substance: AZATHIOPRINE
  4. NUTROPIN AQ [Suspect]
     Active Substance: SOMATROPIN
     Indication: URETERAL DISORDER

REACTIONS (1)
  - Ill-defined disorder [Unknown]
